FAERS Safety Report 8765683 (Version 11)
Quarter: 2013Q2

REPORT INFORMATION
  Report Type: Report from Study
  Country: CA (occurrence: CA)
  Receive Date: 20120904
  Receipt Date: 20130628
  Transmission Date: 20140414
  Serious: Yes (Death, Other)
  Sender: FDA-Public Use
  Company Number: PHHY2009CA32348

PATIENT
  Age: 71 Year
  Sex: Female

DRUGS (4)
  1. SANDOSTATIN LAR [Suspect]
     Indication: METASTATIC CARCINOID TUMOUR
     Dosage: 20 MG, EVERY 4 WEEKS
     Route: 030
     Dates: start: 20090731
  2. SANDOSTATIN LAR [Suspect]
     Dosage: 40 MG, EVERY THREE WEEKS
     Route: 030
  3. SANDOSTATIN LAR [Suspect]
     Dosage: 30 MG, EVERY THREE WEEKS
     Route: 030
  4. SANDOSTATIN LAR [Suspect]
     Dosage: 40 MG, EVERY THREE WEEKS
     Route: 030
     Dates: end: 20130425

REACTIONS (4)
  - Death [Fatal]
  - Pelvic fracture [Unknown]
  - Blood pressure systolic increased [Unknown]
  - Blood pressure increased [Unknown]
